FAERS Safety Report 7463022-2 (Version None)
Quarter: 2011Q2

REPORT INFORMATION
  Report Type: 
  Country: None (occurrence: None)
  Receive Date: 20110506
  Receipt Date: 20110414
  Transmission Date: 20111010
  Serious: Yes (Other)
  Sender: FDA-Public Use
  Company Number: US-BAYER-200934334NA

PATIENT
  Age: 57 Year
  Sex: Female

DRUGS (22)
  1. LEVOTHYROXINE SODIUM [Concomitant]
  2. LISINOPRIL [Concomitant]
  3. RED BLOOD CELLS [Concomitant]
     Dosage: 750CC
     Route: 042
     Dates: start: 20050901, end: 20050901
  4. RED BLOOD CELLS [Concomitant]
     Dosage: 2 U, UNK
     Dates: start: 20050918, end: 20050919
  5. RED BLOOD CELLS [Concomitant]
     Dosage: 3 U, UNK
     Dates: start: 20051001, end: 20051005
  6. TRASYLOL [Suspect]
     Indication: CORONARY ARTERY BYPASS
     Dosage: 400CC, LOADING DOSE
     Route: 042
     Dates: start: 20050901, end: 20050901
  7. ISORBIDE [Concomitant]
  8. LEVOXYL [Concomitant]
  9. PLASMALYTE [GLUCOSE,POTASSIUM CHLORIDE] [Concomitant]
     Dosage: UNK
     Route: 042
     Dates: start: 20050901, end: 20050901
  10. RED BLOOD CELLS [Concomitant]
     Dosage: 11 U, UNK
     Dates: start: 20050902
  11. NITROGLYCERIN [Concomitant]
  12. CRESTOR [Concomitant]
  13. HYZAAR [Concomitant]
  14. FRESH FROZEN PLASMA [Concomitant]
     Dosage: 2 U, UNK
  15. FRESH FROZEN PLASMA [Concomitant]
     Dosage: 2 U, UNK
     Dates: start: 20050902
  16. CRYOPRECIPITATES [Concomitant]
     Dosage: 10 U, UNK
     Dates: start: 20050901, end: 20050902
  17. TRASYLOL [Suspect]
     Dosage: 50CC/HR
     Route: 042
     Dates: start: 20050901, end: 20050901
  18. LIDOCAINE [Concomitant]
     Dosage: UNK
     Route: 042
     Dates: start: 20050901
  19. RED BLOOD CELLS [Concomitant]
     Dosage: 2 U, UNK
     Dates: start: 20050913
  20. ASPIRIN [Concomitant]
  21. ATENOLOL [Concomitant]
  22. MIDAZOLAM [Concomitant]
     Dosage: UNK
     Route: 042
     Dates: start: 20050901

REACTIONS (13)
  - RENAL INJURY [None]
  - FEAR [None]
  - PAIN [None]
  - EMOTIONAL DISTRESS [None]
  - ANHEDONIA [None]
  - RENAL FAILURE [None]
  - NERVOUSNESS [None]
  - INJURY [None]
  - MULTI-ORGAN FAILURE [None]
  - ANXIETY [None]
  - UNEVALUABLE EVENT [None]
  - DEPRESSION [None]
  - INTESTINAL OBSTRUCTION [None]
